FAERS Safety Report 10022869 (Version 2)
Quarter: 2014Q1

REPORT INFORMATION
  Report Type: Spontaneous
  Country: US (occurrence: US)
  Receive Date: 20140319
  Receipt Date: 20140319
  Transmission Date: 20141002
  Serious: Yes (Hospitalization)
  Sender: FDA-Public Use
  Company Number: US-LUNDBECK-DKLU1095888

PATIENT
  Age: 44 Year
  Sex: Female
  Weight: 58 kg

DRUGS (2)
  1. SABRIL (TABLET) [Suspect]
     Indication: COMPLEX PARTIAL SEIZURES
     Route: 048
     Dates: start: 20130522, end: 20131115
  2. SABRIL (TABLET) [Suspect]
     Route: 048

REACTIONS (2)
  - Mania [Recovered/Resolved]
  - Drug withdrawal convulsions [Recovered/Resolved]
